FAERS Safety Report 7854753-0 (Version None)
Quarter: 2011Q4

REPORT INFORMATION
  Report Type: 
  Country: None (occurrence: None)
  Receive Date: 20111026
  Receipt Date: 20110909
  Transmission Date: 20120403
  Serious: No
  Sender: FDA-Public Use
  Company Number: US-MUTUAL PHARMACEUTICAL COMPANY, INC.-CLCY20110123

PATIENT
  Sex: Male

DRUGS (2)
  1. COLCRYS [Suspect]
     Indication: GOUT
     Route: 048
     Dates: start: 20110906, end: 20110906
  2. COLCRYS [Suspect]
     Route: 048
     Dates: start: 20110907, end: 20110908

REACTIONS (1)
  - DRUG INEFFECTIVE [None]
